FAERS Safety Report 14421184 (Version 2)
Quarter: 2018Q2

REPORT INFORMATION
  Report Type: Spontaneous
  Country: US (occurrence: US)
  Receive Date: 20180122
  Receipt Date: 20180405
  Transmission Date: 20180711
  Serious: No
  Sender: FDA-Public Use
  Company Number: US-NEUROCRINE BIOSCIENCES INC.-2017NBI01889

PATIENT
  Sex: Male

DRUGS (14)
  1. BENZTROPINE. [Concomitant]
     Active Substance: BENZTROPINE
     Indication: TREMOR
     Route: 048
     Dates: start: 20170629, end: 20170629
  2. TRAZODONE [Concomitant]
     Active Substance: TRAZODONE HYDROCHLORIDE
     Dosage: EVERY NIGHT
     Route: 048
     Dates: start: 20150908
  3. LISINOPRIL. [Concomitant]
     Active Substance: LISINOPRIL
     Dosage: EVERY MORNING
     Route: 048
  4. FANAPT [Concomitant]
     Active Substance: ILOPERIDONE
     Dosage: MORNING AND NIGHT
     Route: 048
     Dates: start: 20151123
  5. CLOZARIL [Concomitant]
     Active Substance: CLOZAPINE
     Dosage: AT NIGHT
     Route: 048
     Dates: start: 20140317
  6. CLOZARIL [Concomitant]
     Active Substance: CLOZAPINE
     Dosage: EVERY NIGHT
     Route: 048
     Dates: start: 20151012
  7. PROPRANOLOL [Concomitant]
     Active Substance: PROPRANOLOL HYDROCHLORIDE
     Route: 048
     Dates: start: 20170706
  8. NEURONTIN [Concomitant]
     Active Substance: GABAPENTIN
     Route: 048
     Dates: start: 20150126, end: 20171002
  9. ASA [Concomitant]
     Active Substance: ASPIRIN
     Dosage: EVERY MORNING
     Route: 048
  10. KLONOPIN [Concomitant]
     Active Substance: CLONAZEPAM
     Dosage: MORNING AND NIGHT
     Route: 048
     Dates: start: 20160310
  11. FLOMAX [Concomitant]
     Active Substance: TAMSULOSIN HYDROCHLORIDE
     Dosage: EVERY MORNING
     Route: 048
  12. INGREZZA [Suspect]
     Active Substance: VALBENAZINE
     Indication: TARDIVE DYSKINESIA
     Route: 048
     Dates: start: 20170719, end: 20170725
  13. INGREZZA [Suspect]
     Active Substance: VALBENAZINE
     Route: 048
     Dates: start: 20170726, end: 20171208
  14. JANUVIA [Concomitant]
     Active Substance: SITAGLIPTIN PHOSPHATE
     Dosage: EVERY MORNING
     Route: 048

REACTIONS (1)
  - Tardive dyskinesia [Unknown]

NARRATIVE: CASE EVENT DATE: 2017
